FAERS Safety Report 13333995 (Version 1)
Quarter: 2017Q1

REPORT INFORMATION
  Report Type: Spontaneous
  Country: IN (occurrence: IN)
  Receive Date: 20170314
  Receipt Date: 20170314
  Transmission Date: 20170428
  Serious: Yes (Death)
  Sender: FDA-Public Use
  Company Number: IN-SA-2017SA040779

PATIENT
  Age: 4 Year
  Sex: Male

DRUGS (10)
  1. PHENYTOIN. [Suspect]
     Active Substance: PHENYTOIN
     Indication: MENINGOENCEPHALITIS AMOEBIC
     Route: 065
  2. MANNITOL. [Suspect]
     Active Substance: MANNITOL
     Indication: MENINGOENCEPHALITIS AMOEBIC
     Route: 065
  3. TRIMETHOPRIM/SULFAMETHOXAZOLE [Suspect]
     Active Substance: SULFAMETHOXAZOLE\TRIMETHOPRIM
     Indication: MENINGOENCEPHALITIS AMOEBIC
     Route: 065
  4. RIFAMPICIN [Suspect]
     Active Substance: RIFAMPIN
     Indication: MENINGOENCEPHALITIS AMOEBIC
     Route: 065
  5. TRIMETHOPRIM/SULFAMETHOXAZOLE [Suspect]
     Active Substance: SULFAMETHOXAZOLE\TRIMETHOPRIM
     Indication: MENINGOENCEPHALITIS AMOEBIC
     Route: 065
  6. RIFAMPICIN [Suspect]
     Active Substance: RIFAMPIN
     Indication: MENINGOENCEPHALITIS AMOEBIC
     Route: 065
  7. MANNITOL. [Suspect]
     Active Substance: MANNITOL
     Indication: MENINGOENCEPHALITIS AMOEBIC
     Route: 065
  8. AMPHOTERICIN B. [Suspect]
     Active Substance: AMPHOTERICIN B
     Indication: MENINGOENCEPHALITIS AMOEBIC
     Route: 065
  9. AMPHOTERICIN B. [Suspect]
     Active Substance: AMPHOTERICIN B
     Indication: MENINGOENCEPHALITIS AMOEBIC
     Route: 065
  10. PHENYTOIN. [Suspect]
     Active Substance: PHENYTOIN
     Indication: MENINGOENCEPHALITIS AMOEBIC
     Route: 065

REACTIONS (2)
  - Disease progression [Fatal]
  - Meningoencephalitis amoebic [Fatal]
